FAERS Safety Report 7610340-0 (Version None)
Quarter: 2011Q3

REPORT INFORMATION
  Report Type: 
  Country: None (occurrence: None)
  Receive Date: 20110715
  Receipt Date: 20110707
  Transmission Date: 20111222
  Serious: Yes (Death)
  Sender: FDA-Public Use
  Company Number: US-JNJFOC-20100605689

PATIENT
  Sex: Female
  Weight: 9.75 kg

DRUGS (4)
  1. CONCENTRATED TYLENOL INFANT DROPS [Suspect]
     Indication: PYREXIA
     Route: 048
  2. CONCENTRATED MOTRIN INFANTS DROPS [Suspect]
     Route: 048
  3. CONCENTRATED TYLENOL INFANT DROPS [Suspect]
     Route: 048
  4. CONCENTRATED MOTRIN INFANTS DROPS [Suspect]
     Indication: PYREXIA
     Route: 048
     Dates: start: 20091002, end: 20091003

REACTIONS (3)
  - CARDIAC ARREST [None]
  - DRUG INEFFECTIVE [None]
  - PRODUCT QUALITY ISSUE [None]
